FAERS Safety Report 6517599-1 (Version None)
Quarter: 2009Q4

REPORT INFORMATION
  Report Type: 
  Country: None (occurrence: None)
  Receive Date: 20091224
  Receipt Date: 20091215
  Transmission Date: 20100525
  Serious: Yes (Other)
  Sender: FDA-Public Use
  Company Number: PHEH2009US12288

PATIENT
  Sex: Female

DRUGS (6)
  1. RECLAST [Suspect]
     Indication: OSTEOPOROSIS
     Dosage: UNK
     Route: 065
     Dates: start: 20080201, end: 20080201
  2. RECLAST [Suspect]
     Dosage: UNK
     Route: 065
     Dates: start: 20090201, end: 20090201
  3. CALCIUM [Concomitant]
     Dosage: UNK, UNK
     Route: 065
  4. VITAMIN D [Concomitant]
     Dosage: UNK, UNK
     Route: 065
  5. ALTACE [Concomitant]
     Dosage: 5 MG, UNK
     Route: 048
  6. PRILOSEC [Concomitant]
     Dosage: UNK, UNK
     Route: 048

REACTIONS (7)
  - BONE DENSITY DECREASED [None]
  - BONE DISORDER [None]
  - BONE SWELLING [None]
  - MEDICAL DEVICE REMOVAL [None]
  - OEDEMA MOUTH [None]
  - ORAL DISORDER [None]
  - STOMATITIS [None]
